FAERS Safety Report 6794090-9 (Version None)
Quarter: 2010Q2

REPORT INFORMATION
  Report Type: 
  Country: None (occurrence: None)
  Receive Date: 20100624
  Receipt Date: 20090910
  Transmission Date: 20101027
  Serious: Yes (Other)
  Sender: FDA-Public Use
  Company Number: JP-PFIZER INC-2009248599

PATIENT
  Age: 80 Year
  Sex: Male

DRUGS (2)
  1. UNASYN [Suspect]
     Dosage: FREQUENCY: 4X/DAY,
     Route: 042
  2. ZOSYN [Suspect]
     Dosage: UNK
     Dates: start: 20090701

REACTIONS (1)
  - INTERSTITIAL LUNG DISEASE [None]
